FAERS Safety Report 23763647 (Version 1)
Quarter: 2024Q2

REPORT INFORMATION
  Report Type: Spontaneous
  Country: CN (occurrence: CN)
  Receive Date: 20240419
  Receipt Date: 20240419
  Transmission Date: 20240716
  Serious: Yes (Hospitalization, Other)
  Sender: FDA-Public Use
  Company Number: CN-BAYER-2024A058221

PATIENT
  Age: 26 Year
  Sex: Female
  Weight: 51 kg

DRUGS (1)
  1. YAZ [Suspect]
     Active Substance: DROSPIRENONE\ETHINYL ESTRADIOL
     Indication: Contraception
     Dosage: 1 DF, QD
     Route: 048
     Dates: start: 20240205, end: 20240320

REACTIONS (6)
  - Superior sagittal sinus thrombosis [Recovering/Resolving]
  - Epilepsy [Recovered/Resolved]
  - Seizure [Recovered/Resolved]
  - Cerebral infarction [Recovering/Resolving]
  - Pneumonia aspiration [Recovering/Resolving]
  - Headache [Recovering/Resolving]

NARRATIVE: CASE EVENT DATE: 20240301
